FAERS Safety Report 8896000 (Version 2)
Quarter: 2012Q4

REPORT INFORMATION
  Report Type: 
  Country: US (occurrence: US)
  Receive Date: 20121108
  Receipt Date: 20121115
  Transmission Date: 20130627
  Serious: Yes (Hospitalization)
  Sender: FDA-Public Use
  Company Number: US-ACTELION-A-NJ2012-73855

PATIENT
  Age: 43 Year
  Sex: Female

DRUGS (5)
  1. TRACLEER [Suspect]
     Indication: PULMONARY ARTERIAL HYPERTENSION
     Dosage: UNK
     Route: 048
  2. FLOLAN [Concomitant]
  3. SILDENAFIL [Concomitant]
  4. COUMADIN [Concomitant]
  5. OXYGEN [Concomitant]

REACTIONS (5)
  - Pulmonary thrombosis [Unknown]
  - Dyspnoea [Unknown]
  - Cough [Unknown]
  - Infection [Unknown]
  - Red blood cell count abnormal [Unknown]
